FAERS Safety Report 10197455 (Version 1)
Quarter: 2014Q2

REPORT INFORMATION
  Report Type: Spontaneous
  Country: US (occurrence: None)
  Receive Date: 20140523
  Receipt Date: 20140523
  Transmission Date: 20141212
  Serious: Yes (Disabling, Other)
  Sender: FDA-Public Use
  Company Number: None

PATIENT
  Age: 35 Year
  Sex: Male
  Weight: 70.31 kg

DRUGS (1)
  1. LEVAQUIN 750MG [Suspect]
     Indication: SINUSITIS
     Dosage: YES, ONCE DAILY, TAKEN BY MOUTH
     Route: 048
     Dates: start: 20130801, end: 20130821

REACTIONS (5)
  - Myalgia [None]
  - Gait disturbance [None]
  - Pain [None]
  - Tendon rupture [None]
  - Arthropathy [None]
